FAERS Safety Report 4345796-2 (Version None)
Quarter: 2004Q2

REPORT INFORMATION
  Report Type: 
  Country: None (occurrence: None)
  Receive Date: 20040421
  Receipt Date: 20040415
  Transmission Date: 20050107
  Serious: Yes (Life-Threatening)
  Sender: FDA-Public Use
  Company Number: 200410136BYL

PATIENT
  Age: 74 Year
  Sex: Female
  Weight: 40 kg

DRUGS (4)
  1. CIPROFLOXACIN [Suspect]
     Indication: PNEUMONIA
     Dosage: 600 MG, TOTAL DAILY, INTRAVENOUS
     Route: 042
     Dates: start: 20040314, end: 20040316
  2. MEROPEN [Concomitant]
  3. GASTER [Concomitant]
  4. ELASPOL [Concomitant]

REACTIONS (1)
  - INTERSTITIAL LUNG DISEASE [None]
